FAERS Safety Report 16237522 (Version 2)
Quarter: 2019Q2

REPORT INFORMATION
  Report Type: Report from Study
  Country: DE (occurrence: DE)
  Receive Date: 20190425
  Receipt Date: 20190626
  Transmission Date: 20190711
  Serious: Yes (Hospitalization)
  Sender: FDA-Public Use
  Company Number: DE-BIOGEN-2019BI00728158

PATIENT
  Sex: Male
  Weight: 115 kg

DRUGS (1)
  1. PLEGRIDY [Suspect]
     Active Substance: PEGINTERFERON BETA-1A
     Indication: MULTIPLE SCLEROSIS
     Route: 058
     Dates: start: 20160606

REACTIONS (4)
  - Renal function test abnormal [Not Recovered/Not Resolved]
  - Depressed mood [Not Recovered/Not Resolved]
  - Epilepsy [Recovered/Resolved]
  - Chronic obstructive pulmonary disease [Not Recovered/Not Resolved]

NARRATIVE: CASE EVENT DATE: 2017
